FAERS Safety Report 4313464-9 (Version None)
Quarter: 2004Q1

REPORT INFORMATION
  Report Type: 
  Country: None (occurrence: None)
  Receive Date: 20040308
  Receipt Date: 20040213
  Transmission Date: 20041129
  Serious: Yes (Death, Hospitalization)
  Sender: FDA-Public Use
  Company Number: WAES 0402USA01125

PATIENT
  Age: 91 Year
  Sex: Male

DRUGS (4)
  1. AZTREONAM [Concomitant]
     Indication: PYELONEPHRITIS ACUTE
     Dates: start: 20040123, end: 20040130
  2. PRIMAXIN [Suspect]
     Indication: PNEUMONIA STAPHYLOCOCCAL
     Route: 042
     Dates: start: 20040203, end: 20040209
  3. PRIMAXIN [Concomitant]
     Indication: PYELONEPHRITIS ACUTE
     Route: 042
     Dates: start: 20040118, end: 20040122
  4. TEICOPLANIN [Suspect]
     Indication: PNEUMONIA STAPHYLOCOCCAL
     Route: 042
     Dates: start: 20040126, end: 20040209

REACTIONS (5)
  - DRUG TOXICITY [None]
  - HAEMOGLOBIN DECREASED [None]
  - PLATELET COUNT DECREASED [None]
  - PNEUMONIA [None]
  - THROMBOCYTOPENIA [None]
